FAERS Safety Report 17120399 (Version 1)
Quarter: 2019Q4

REPORT INFORMATION
  Report Type: Spontaneous
  Country: US (occurrence: US)
  Receive Date: 20191206
  Receipt Date: 20191206
  Transmission Date: 20200122
  Serious: Yes (Hospitalization)
  Sender: FDA-Public Use
  Company Number: US-ZYDUS-044199

PATIENT
  Age: 37 Year
  Sex: Female

DRUGS (2)
  1. LURASIDONE [Suspect]
     Active Substance: LURASIDONE
     Indication: BIPOLAR DISORDER
     Route: 065
  2. LURASIDONE [Suspect]
     Active Substance: LURASIDONE
     Indication: BIPOLAR DISORDER
     Route: 065

REACTIONS (9)
  - Mania [Recovered/Resolved]
  - Speech disorder [Recovered/Resolved]
  - Tachyphrenia [Recovered/Resolved]
  - Condition aggravated [Unknown]
  - Euphoric mood [Recovered/Resolved]
  - Impulsive behaviour [Recovered/Resolved]
  - Hypersexuality [Recovered/Resolved]
  - Distractibility [Recovered/Resolved]
  - Sleep disorder [Recovered/Resolved]
